FAERS Safety Report 17830722 (Version 1)
Quarter: 2020Q2

REPORT INFORMATION
  Report Type: Report from Study
  Country: KR (occurrence: KR)
  Receive Date: 20200527
  Receipt Date: 20200527
  Transmission Date: 20200714
  Serious: Yes (Other)
  Sender: FDA-Public Use
  Company Number: KR-EISAI MEDICAL RESEARCH-EC-2019-054629

PATIENT
  Age: 17 Year
  Sex: Male
  Weight: 40 kg

DRUGS (7)
  1. SENTIL [Concomitant]
     Active Substance: CLOBAZAM
  2. FYCOMPA [Suspect]
     Active Substance: PERAMPANEL
     Indication: EPILEPSY
     Route: 048
     Dates: start: 20160929, end: 20161219
  3. LORAVAN [Concomitant]
     Active Substance: LORAZEPAM
  4. INOVELON [Concomitant]
     Active Substance: RUFINAMIDE
     Route: 048
  5. KEPPRA [Concomitant]
     Active Substance: LEVETIRACETAM
  6. EXCEGRAN [Concomitant]
     Active Substance: ZONISAMIDE
     Route: 048
  7. SABRIL [Concomitant]
     Active Substance: VIGABATRIN

REACTIONS (1)
  - Aggression [Recovered/Resolved]

NARRATIVE: CASE EVENT DATE: 201610
